FAERS Safety Report 13042666 (Version 1)
Quarter: 2016Q4

REPORT INFORMATION
  Report Type: Report from Study
  Country: FR (occurrence: GB)
  Receive Date: 20161219
  Receipt Date: 20161219
  Transmission Date: 20170207
  Serious: Yes (Other)
  Sender: FDA-Public Use
  Company Number: FR-PFIZER INC-2016578619

PATIENT
  Age: 1 Month
  Sex: Female

DRUGS (4)
  1. RAPAMUNE [Suspect]
     Active Substance: SIROLIMUS
     Indication: HYPERINSULINISM
     Dosage: 2.3 MG/M2, DAILY (MAXIMAL DOSE)
     Route: 048
  2. GLUCOSE [Concomitant]
     Active Substance: DEXTROSE
     Indication: HYPERINSULINISM
     Dosage: 10.6 MG/KG, UNK
     Route: 042
  3. GLUCAGON. [Concomitant]
     Active Substance: GLUCAGON
     Indication: HYPERINSULINISM
     Dosage: 7.5 UG/KG, HOURLY
  4. SOMATOSTATIN [Concomitant]
     Active Substance: SOMATOSTATIN
     Dosage: 20 UG/KG, DAILY

REACTIONS (2)
  - Pancreatic insufficiency [Unknown]
  - Anaemia [Unknown]
